FAERS Safety Report 8224864-9 (Version None)
Quarter: 2012Q1

REPORT INFORMATION
  Report Type: 
  Country: None (occurrence: None)
  Receive Date: 20120320
  Receipt Date: 20120320
  Transmission Date: 20120608
  Serious: Yes (Other)
  Sender: FDA-Public Use
  Company Number: None

PATIENT
  Sex: Male
  Weight: 52.6173 kg

DRUGS (2)
  1. CITALOPRAM 20 MG CARACO [Suspect]
     Indication: GENERALISED ANXIETY DISORDER
     Dosage: 20MG DAILY 047
     Dates: start: 20120109, end: 20120206
  2. CITALOPRAM HYDROBROMIDE [Suspect]
     Indication: GENERALISED ANXIETY DISORDER
     Dosage: 20MG DAILY 047
     Dates: start: 20120207, end: 20120305

REACTIONS (3)
  - AGITATION [None]
  - IRRITABILITY [None]
  - ANXIETY [None]
